FAERS Safety Report 23618039 (Version 1)
Quarter: 2024Q1

REPORT INFORMATION
  Report Type: Other
  Country: GB (occurrence: GB)
  Receive Date: 20240311
  Receipt Date: 20240311
  Transmission Date: 20240409
  Serious: Yes (Other)
  Sender: FDA-Public Use
  Company Number: GB-VERTICAL PHARMACEUTICALS-2024ALO00043

PATIENT
  Age: 46 Year
  Sex: Female
  Weight: 63 kg

DRUGS (2)
  1. DIVIGEL [Suspect]
     Active Substance: ESTRADIOL
     Indication: Menopause
     Dosage: (2 MG)
     Dates: start: 20230721
  2. Concomitant treatments not reported [Concomitant]

REACTIONS (16)
  - Anaphylactic reaction [Recovering/Resolving]
  - Anxiety [Not Recovered/Not Resolved]
  - Hypertension [Recovering/Resolving]
  - Dyspnoea [Not Recovered/Not Resolved]
  - Palpitations [Not Recovered/Not Resolved]
  - Rhinitis [Not Recovered/Not Resolved]
  - Musculoskeletal stiffness [Not Recovered/Not Resolved]
  - Hyperhidrosis [Recovering/Resolving]
  - Constipation [Not Recovered/Not Resolved]
  - Dizziness [Recovering/Resolving]
  - Abdominal pain upper [Not Recovered/Not Resolved]
  - Myalgia [Not Recovered/Not Resolved]
  - Tremor [Recovered/Resolved with Sequelae]
  - Rash pruritic [Recovered/Resolved]
  - Asthenia [Unknown]
  - Malaise [Unknown]

NARRATIVE: CASE EVENT DATE: 20240217
